FAERS Safety Report 4779003-3 (Version None)
Quarter: 2005Q3

REPORT INFORMATION
  Report Type: 
  Country: None (occurrence: None)
  Receive Date: 20050923
  Receipt Date: 20050909
  Transmission Date: 20060218
  Serious: Yes (Life-Threatening)
  Sender: FDA-Public Use
  Company Number: 2005S1008892

PATIENT
  Age: 67 Year
  Sex: Female

DRUGS (7)
  1. APOMORPHINE HYDROCHLORIDE (APOMORPHINE HYDROCHLORIDE) [Suspect]
     Indication: PARKINSON'S DISEASE
     Dosage: 3 MG/HR; SC ; 3.5 MG/HR; SC
     Route: 058
     Dates: start: 20050701, end: 20050812
  2. APOMORPHINE HYDROCHLORIDE (APOMORPHINE HYDROCHLORIDE) [Suspect]
     Indication: PARKINSON'S DISEASE
     Dosage: 3 MG/HR; SC ; 3.5 MG/HR; SC
     Route: 058
     Dates: start: 20050819, end: 20050822
  3. VENLAFAXINE HYDROCHLORIDE [Concomitant]
  4. AMANTADINE HCL [Concomitant]
  5. LEVOTHYROXINE [Concomitant]
  6. COLECALCIFEROL/CALCIUM CARBONATE [Concomitant]
  7. PIRENZEPINE DIHYDROCHLORIDE [Concomitant]

REACTIONS (4)
  - ATELECTASIS [None]
  - BRADYKINESIA [None]
  - RESPIRATORY DEPRESSION [None]
  - RESPIRATORY FAILURE [None]
